FAERS Safety Report 19227568 (Version 1)
Quarter: 2021Q2

REPORT INFORMATION
  Report Type: Spontaneous
  Country: FR (occurrence: FR)
  Receive Date: 20210507
  Receipt Date: 20210507
  Transmission Date: 20210717
  Serious: Yes (Other)
  Sender: FDA-Public Use
  Company Number: FR-AMGEN-FRASP2021066149

PATIENT

DRUGS (11)
  1. INFLIXIMAB [Concomitant]
     Active Substance: INFLIXIMAB
     Indication: BEHCET^S SYNDROME
     Dosage: UNK
  2. MYCOPHENOLATE MOFETIL. [Concomitant]
     Active Substance: MYCOPHENOLATE MOFETIL
  3. ADALIMUMAB [Suspect]
     Active Substance: ADALIMUMAB
     Indication: BEHCET^S SYNDROME
     Dosage: UNK
     Route: 065
  4. EDOXABAN [Concomitant]
     Active Substance: EDOXABAN TOSYLATE
  5. AZATHIOPRINE. [Concomitant]
     Active Substance: AZATHIOPRINE
  6. DABIGATRAN [Concomitant]
     Active Substance: DABIGATRAN
  7. RIVAROXABAN [Concomitant]
     Active Substance: RIVAROXABAN
  8. COLCHICINE. [Concomitant]
     Active Substance: COLCHICINE
  9. APIXABAN [Concomitant]
     Active Substance: APIXABAN
  10. METHOTREXATE. [Concomitant]
     Active Substance: METHOTREXATE
  11. CYCLOPHOSPHAMIDE. [Concomitant]
     Active Substance: CYCLOPHOSPHAMIDE

REACTIONS (5)
  - Deep vein thrombosis [Unknown]
  - Off label use [Unknown]
  - Post thrombotic syndrome [Unknown]
  - Uterine haemorrhage [Unknown]
  - Behcet^s syndrome [Unknown]
